FAERS Safety Report 5267016-7 (Version None)
Quarter: 2007Q1

REPORT INFORMATION
  Report Type: 
  Country: None (occurrence: None)
  Receive Date: 20061213
  Receipt Date: 20030415
  Transmission Date: 20070707
  Serious: No
  Sender: FDA-Public Use
  Company Number: 2003UW05107

PATIENT
  Age: 54 Year
  Sex: Female
  Weight: 59.6026 kg

DRUGS (4)
  1. NOLVADEX [Suspect]
     Indication: BREAST CANCER
     Dosage: 20 MG DAILY PO
     Route: 048
     Dates: start: 19970828, end: 20020822
  2. PROZAC [Concomitant]
  3. PRILOSEC [Concomitant]
  4. FOSAMAX [Concomitant]

REACTIONS (1)
  - CATARACT [None]
